FAERS Safety Report 8018108-0 (Version None)
Quarter: 2012Q1

REPORT INFORMATION
  Report Type: 
  Country: None (occurrence: None)
  Receive Date: 20120103
  Receipt Date: 20111222
  Transmission Date: 20120608
  Serious: Yes (Hospitalization)
  Sender: FDA-Public Use
  Company Number: CA-ELI_LILLY_AND_COMPANY-CA201111006905

PATIENT
  Sex: Male
  Weight: 61.7 kg

DRUGS (5)
  1. FORTEO [Suspect]
     Indication: OSTEOPOROSIS
     Dosage: 20 UG, QD
     Route: 058
     Dates: start: 20101202
  2. ATENOLOL [Concomitant]
     Dosage: 50 MG, QD
     Route: 048
  3. NITROGLYCERIN SPRAY [Concomitant]
     Dosage: 0.4 MG, PRN
     Route: 060
  4. LISINOPRIL [Concomitant]
     Dosage: 5 MG, QD
     Route: 048
  5. PRAVASTATIN [Concomitant]
     Dosage: 40 MG, EACH EVENING
     Route: 048

REACTIONS (1)
  - ANGINA PECTORIS [None]
